FAERS Safety Report 24178972 (Version 2)
Quarter: 2024Q3

REPORT INFORMATION
  Report Type: Spontaneous
  Country: RU (occurrence: RU)
  Receive Date: 20240806
  Receipt Date: 20240814
  Transmission Date: 20241017
  Serious: Yes (Life-Threatening, Hospitalization, Other)
  Sender: RANBAXY
  Company Number: RU-SUN PHARMACEUTICAL INDUSTRIES LTD-2023R1-415951

PATIENT
  Age: 80 Year

DRUGS (4)
  1. SOTALOL [Suspect]
     Active Substance: SOTALOL
     Indication: Arrhythmia
     Dosage: 160 MILLIGRAM, DAILY
     Route: 065
  2. SOTALOL [Suspect]
     Active Substance: SOTALOL
     Indication: Ventricular extrasystoles
  3. ETHACIZINE [Suspect]
     Active Substance: ETHACIZINE
     Indication: Arrhythmia
     Dosage: 150 MILLIGRAM, DAILY
     Route: 065
  4. ETHACIZINE [Suspect]
     Active Substance: ETHACIZINE
     Indication: Ventricular extrasystoles

REACTIONS (3)
  - Ventricular tachycardia [Recovered/Resolved]
  - Myocardial infarction [Unknown]
  - Acute coronary syndrome [Unknown]

NARRATIVE: CASE EVENT DATE: 20220101
